FAERS Safety Report 5870856-4 (Version None)
Quarter: 2008Q3

REPORT INFORMATION
  Report Type: 
  Country: None (occurrence: None)
  Receive Date: 20080904
  Receipt Date: 20080826
  Transmission Date: 20090109
  Serious: Yes (Life-Threatening)
  Sender: FDA-Public Use
  Company Number: MX-TYCO HEALTHCARE/MALLINCKRODT-T200801419

PATIENT

DRUGS (1)
  1. OPTIMARK IN PLASTIC SYRINGES [Suspect]
     Indication: NUCLEAR MAGNETIC RESONANCE IMAGING
     Dosage: 10 ML, SINGLE
     Route: 042
     Dates: start: 20080820, end: 20080820

REACTIONS (8)
  - ANAPHYLACTIC REACTION [None]
  - ANXIETY [None]
  - BRONCHOSPASM [None]
  - HYPOTENSION [None]
  - HYPOXIA [None]
  - LARYNGOSPASM [None]
  - RASH [None]
  - SALIVARY HYPERSECRETION [None]
